FAERS Safety Report 10253387 (Version 1)
Quarter: 2014Q2

REPORT INFORMATION
  Report Type: Spontaneous
  Country: US (occurrence: US)
  Receive Date: 20140623
  Receipt Date: 20140623
  Transmission Date: 20141212
  Serious: No
  Sender: FDA-Public Use
  Company Number: US-SHIONOGI, INC-2014000475

PATIENT
  Age: 53 Year
  Sex: Female

DRUGS (2)
  1. OSPHENA [Suspect]
     Indication: DYSPAREUNIA
     Dosage: UNK
     Route: 065
     Dates: start: 201402, end: 20140425
  2. GABAPENTIN [Concomitant]
     Dosage: 300 MG, BID

REACTIONS (4)
  - Vaginitis bacterial [Unknown]
  - Drug prescribing error [Unknown]
  - Malaise [Unknown]
  - Vaginal discharge [Unknown]
